FAERS Safety Report 5370292-3 (Version None)
Quarter: 2007Q2

REPORT INFORMATION
  Report Type: 
  Country: None (occurrence: None)
  Receive Date: 20070626
  Receipt Date: 20070620
  Transmission Date: 20071010
  Serious: Yes (Death, Life-Threatening, Hospitalization)
  Sender: FDA-Public Use
  Company Number: PT-AVENTIS-200715526GDDC

PATIENT
  Age: 33 Year
  Sex: Female
  Weight: 54 kg

DRUGS (4)
  1. TAXOTERE [Suspect]
     Route: 042
     Dates: start: 20070503, end: 20070503
  2. METOCLOPRAMIDE HYDROCHLORIDE [Concomitant]
     Route: 042
     Dates: start: 20070503, end: 20070503
  3. PREDNISOLONE [Concomitant]
     Route: 048
     Dates: start: 20070503, end: 20070504
  4. DEXAMETHASONE SODIUM PHOSPHATE [Concomitant]
     Route: 042
     Dates: start: 20070503, end: 20070503

REACTIONS (5)
  - AMAUROSIS [None]
  - ANGIOCENTRIC LYMPHOMA [None]
  - CONDITION AGGRAVATED [None]
  - CONFUSIONAL STATE [None]
  - CONVULSION [None]
